FAERS Safety Report 15230833 (Version 2)
Quarter: 2018Q4

REPORT INFORMATION
  Report Type: Report from Study
  Country: None (occurrence: BR)
  Receive Date: 20180802
  Receipt Date: 20181227
  Transmission Date: 20190204
  Serious: Yes (Death, Hospitalization, Other)
  Sender: FDA-Public Use
  Company Number: BR-ABBVIE-18K-020-2437437-00

PATIENT
  Age: 67 Year
  Sex: Female
  Weight: 63 kg

DRUGS (5)
  1. HYDROCHLOROTHIAZIDE. [Concomitant]
     Active Substance: HYDROCHLOROTHIAZIDE
     Indication: HYPERTENSION
  2. HYDROCORTISONE. [Concomitant]
     Active Substance: HYDROCORTISONE
     Indication: RESPIRATION ABNORMAL
  3. HUMIRA [Suspect]
     Active Substance: ADALIMUMAB
     Indication: RHEUMATOID ARTHRITIS
     Route: 058
     Dates: start: 20091221
  4. METHOTREXATE. [Concomitant]
     Active Substance: METHOTREXATE
     Indication: PRODUCT USED FOR UNKNOWN INDICATION
     Route: 048
  5. ATENOLOL. [Concomitant]
     Active Substance: ATENOLOL
     Indication: CARDIAC DISORDER

REACTIONS (21)
  - Asthenia [Recovered/Resolved]
  - Lung disorder [Not Recovered/Not Resolved]
  - Dizziness [Not Recovered/Not Resolved]
  - Toxicity to various agents [Unknown]
  - Nausea [Not Recovered/Not Resolved]
  - Vomiting [Not Recovered/Not Resolved]
  - Hypophagia [Not Recovered/Not Resolved]
  - Mouth ulceration [Unknown]
  - Decreased appetite [Not Recovered/Not Resolved]
  - Blister [Recovered/Resolved]
  - Back pain [Not Recovered/Not Resolved]
  - Anaemia [Not Recovered/Not Resolved]
  - Abdominal pain upper [Not Recovered/Not Resolved]
  - Skin lesion [Recovered/Resolved]
  - Platelet count decreased [Not Recovered/Not Resolved]
  - Localised infection [Recovered/Resolved]
  - Cardiac arrest [Fatal]
  - Epistaxis [Recovered/Resolved]
  - Chest pain [Not Recovered/Not Resolved]
  - Skin discolouration [Recovered/Resolved]
  - Animal bite [Unknown]

NARRATIVE: CASE EVENT DATE: 201711
